FAERS Safety Report 4771628-4 (Version None)
Quarter: 2005Q3

REPORT INFORMATION
  Report Type: 
  Country: None (occurrence: None)
  Receive Date: 20050916
  Receipt Date: 20050907
  Transmission Date: 20060218
  Serious: Yes (Hospitalization, Other)
  Sender: FDA-Public Use
  Company Number: GB-JNJFOC-20050305713

PATIENT
  Sex: Male
  Weight: 85 kg

DRUGS (11)
  1. REMICADE [Suspect]
     Indication: RHEUMATOID ARTHRITIS
     Route: 042
  2. ARAVA [Concomitant]
     Indication: DRUG USE FOR UNKNOWN INDICATION
  3. VOLTAROL [Concomitant]
     Indication: DRUG USE FOR UNKNOWN INDICATION
  4. TRAMADOL [Concomitant]
     Indication: DRUG USE FOR UNKNOWN INDICATION
  5. LOSEC [Concomitant]
     Indication: DRUG USE FOR UNKNOWN INDICATION
  6. METHOTREXATE [Concomitant]
  7. FOLIC ACID [Concomitant]
  8. PREDNISOLONE [Concomitant]
  9. FOSAMAX [Concomitant]
  10. GABAPENTIN [Concomitant]
  11. WARFARIN SODIUM [Concomitant]

REACTIONS (3)
  - CLOSTRIDIAL INFECTION [None]
  - DIARRHOEA [None]
  - LOWER RESPIRATORY TRACT INFECTION [None]
